FAERS Safety Report 18130764 (Version 2)
Quarter: 2020Q3

REPORT INFORMATION
  Report Type: Spontaneous
  Country: US (occurrence: US)
  Receive Date: 20200810
  Receipt Date: 20200818
  Transmission Date: 20201103
  Serious: No
  Sender: FDA-Public Use
  Company Number: US-PFIZER INC-2018315211

PATIENT
  Age: 57 Year
  Sex: Male
  Weight: 96.6 kg

DRUGS (1)
  1. DILANTIN [Suspect]
     Active Substance: PHENYTOIN
     Indication: EPILEPSY
     Dosage: 400 MG, DAILY, (TAKE THREE CAPS IN MORNING AND ONE CAP IN EVENING)
     Route: 048

REACTIONS (1)
  - Memory impairment [Unknown]
